FAERS Safety Report 6990670-6 (Version None)
Quarter: 2010Q3

REPORT INFORMATION
  Report Type: 
  Country: None (occurrence: None)
  Receive Date: 20100916
  Receipt Date: 20090109
  Transmission Date: 20110219
  Serious: Yes (Hospitalization, Other)
  Sender: FDA-Public Use
  Company Number: HQWYE254620JUL04

PATIENT
  Sex: Female

DRUGS (18)
  1. PREMARIN [Suspect]
     Indication: OESTROGEN REPLACEMENT THERAPY
     Dosage: UNKNOWN
     Route: 065
  2. ESTRACE [Suspect]
  3. WELLBUTRIN [Concomitant]
  4. LOTENSIN [Concomitant]
  5. SYNTHROID [Concomitant]
  6. PREVACID [Concomitant]
  7. VITAMINS [Concomitant]
  8. ALBUTEROL [Concomitant]
  9. ATROVENT [Concomitant]
  10. IRON [Concomitant]
  11. NADOLOL [Concomitant]
  12. CLARITIN [Concomitant]
  13. RELAFEN [Concomitant]
  14. LIPITOR [Concomitant]
  15. ESTROGEN NOS [Suspect]
  16. MEDROXYPROGESTERONE ACETATE [Suspect]
  17. PROVERA [Suspect]
     Indication: PRODUCT USED FOR UNKNOWN INDICATION
     Dosage: UNKNOWN
     Route: 065
  18. PREMPRO [Suspect]
     Indication: HORMONE REPLACEMENT THERAPY
     Dosage: UNKNOWN
     Route: 065

REACTIONS (1)
  - BREAST CANCER [None]
